FAERS Safety Report 25822971 (Version 2)
Quarter: 2025Q4

REPORT INFORMATION
  Report Type: Spontaneous
  Country: TW (occurrence: TW)
  Receive Date: 20250919
  Receipt Date: 20251002
  Transmission Date: 20260118
  Serious: Yes (Other)
  Sender: MERCK SHARP & DOHME LLC
  Company Number: TW-009507513-2329443

PATIENT
  Age: 69 Year
  Sex: Male

DRUGS (4)
  1. PEMBROLIZUMAB [Suspect]
     Active Substance: PEMBROLIZUMAB
     Indication: Lung carcinoma cell type unspecified stage III
     Dosage: NEOADJUVANT
     Route: 065
  2. PEMBROLIZUMAB [Suspect]
     Active Substance: PEMBROLIZUMAB
     Indication: Lung carcinoma cell type unspecified stage III
     Dosage: NEOADJUVANT; THE 4TH DOSE
     Route: 065
     Dates: start: 20240904, end: 20240904
  3. CARBOPLATIN [Suspect]
     Active Substance: CARBOPLATIN
     Indication: Lung carcinoma cell type unspecified stage III
     Route: 065
  4. PACLITAXEL [Suspect]
     Active Substance: PACLITAXEL
     Indication: Lung carcinoma cell type unspecified stage III
     Route: 065

REACTIONS (3)
  - Mycobacterial infection [Unknown]
  - Granuloma [Unknown]
  - Off label use [Unknown]

NARRATIVE: CASE EVENT DATE: 20240904
